FAERS Safety Report 5532048-8 (Version None)
Quarter: 2007Q4

REPORT INFORMATION
  Report Type: 
  Country: None (occurrence: None)
  Receive Date: 20071203
  Receipt Date: 20071122
  Transmission Date: 20080405
  Serious: Yes (Hospitalization)
  Sender: FDA-Public Use
  Company Number: B0479792A

PATIENT
  Age: 87 Year
  Sex: Female
  Weight: 63.9 kg

DRUGS (3)
  1. ARIXTRA [Suspect]
     Dosage: 7.5MG AT NIGHT
     Route: 058
     Dates: start: 20070523, end: 20070604
  2. KARDEGIC [Suspect]
     Dosage: 160MG PER DAY
     Route: 048
     Dates: start: 20070522
  3. HALOPERIDOL DECANOATE [Concomitant]
     Dosage: .75UNIT EVERY TWO WEEKS
     Route: 030
     Dates: start: 20070118

REACTIONS (3)
  - DRUG INTERACTION [None]
  - HAEMATOMA [None]
  - INTENTIONAL DRUG MISUSE [None]
